FAERS Safety Report 4853080-3 (Version None)
Quarter: 2005Q4

REPORT INFORMATION
  Report Type: 
  Country: None (occurrence: None)
  Receive Date: 20051212
  Receipt Date: 20051121
  Transmission Date: 20060501
  Serious: Yes (Hospitalization)
  Sender: FDA-Public Use
  Company Number: US200512000129

PATIENT
  Age: 58 Year
  Sex: Female

DRUGS (4)
  1. FORTEO [Suspect]
     Indication: OSTEOPOROSIS
     Dosage: 20 UG, DAILY (1/D)
     Dates: start: 20041230
  2. FORTEO PEN (FORTEO PEN) [Concomitant]
  3. CALCIUM AND VITAMIN D [Concomitant]
  4. AXID [Concomitant]

REACTIONS (3)
  - CONDITION AGGRAVATED [None]
  - PHARMACEUTICAL PRODUCT COMPLAINT [None]
  - POLYP [None]
